FAERS Safety Report 8395585-7 (Version None)
Quarter: 2012Q2

REPORT INFORMATION
  Report Type: 
  Country: None (occurrence: None)
  Receive Date: 20120530
  Receipt Date: 20111005
  Transmission Date: 20120825
  Serious: No
  Sender: FDA-Public Use
  Company Number: US-GLAXOSMITHKLINE-A0947564A

PATIENT
  Age: 94 Year
  Sex: Female

DRUGS (9)
  1. ASPIRIN [Concomitant]
  2. COREG [Concomitant]
  3. AMLODIPINE BESYLATE [Concomitant]
  4. MULTI-VITAMINS [Concomitant]
  5. VITAMIN C [Concomitant]
  6. VENTOLIN [Suspect]
     Indication: DYSPHONIA
     Dosage: 2PUFF AS REQUIRED
     Route: 055
     Dates: start: 20090201
  7. STOOL SOFTENER [Concomitant]
  8. RANITIDINE [Concomitant]
  9. MELOXICAM [Concomitant]

REACTIONS (4)
  - THROAT IRRITATION [None]
  - THERAPEUTIC RESPONSE DECREASED [None]
  - PRODUCT QUALITY ISSUE [None]
  - DYSPHONIA [None]
